FAERS Safety Report 23850329 (Version 3)
Quarter: 2024Q2

REPORT INFORMATION
  Report Type: Spontaneous
  Country: US (occurrence: US)
  Receive Date: 20240513
  Receipt Date: 20240614
  Transmission Date: 20240716
  Serious: Yes (Hospitalization)
  Sender: FDA-Public Use
  Company Number: US-AMRYT PHARMACEUTICALS DAC-AEGR007108

PATIENT
  Age: 30 Year
  Sex: Female
  Weight: 63.946 kg

DRUGS (4)
  1. MYALEPT [Suspect]
     Active Substance: METRELEPTIN
     Indication: Congenital generalised lipodystrophy
     Dosage: 11.3MG VIAL), 5MG (1ML OR 100 UNITS) UNDER THE SKIN, EVERY 12 HOURS
     Route: 058
     Dates: end: 20240211
  2. MYALEPT [Suspect]
     Active Substance: METRELEPTIN
     Indication: Leptin level decreased
     Dosage: 11.3MG VIAL), 5MG (1ML OR 100 UNITS) UNDER THE SKIN, EVERY 12 HOURS
     Route: 058
     Dates: start: 20240216
  3. METFORMIN HYDROCHLORIDE [Concomitant]
     Active Substance: METFORMIN HYDROCHLORIDE
     Indication: Product used for unknown indication
     Dosage: 500 MILLIGRAM
  4. BACTERIOSTATIC WATER [Concomitant]
     Active Substance: WATER
     Indication: Product used for unknown indication

REACTIONS (2)
  - Subcutaneous abscess [Recovered/Resolved]
  - Intentional dose omission [Recovered/Resolved]

NARRATIVE: CASE EVENT DATE: 20240211
